FAERS Safety Report 7782327-9 (Version None)
Quarter: 2011Q3

REPORT INFORMATION
  Report Type: 
  Country: None (occurrence: None)
  Receive Date: 20110927
  Receipt Date: 20110914
  Transmission Date: 20111222
  Serious: Yes (Other)
  Sender: FDA-Public Use
  Company Number: CA-ELI_LILLY_AND_COMPANY-CA201109003675

PATIENT
  Sex: Male

DRUGS (1)
  1. ZYPREXA [Suspect]
     Dosage: 1 DF, UNKNOWN

REACTIONS (15)
  - HYPERHIDROSIS [None]
  - DRY SKIN [None]
  - INCREASED APPETITE [None]
  - DEPRESSION [None]
  - DRY MOUTH [None]
  - THIRST [None]
  - CONFUSIONAL STATE [None]
  - MYOCARDIAL INFARCTION [None]
  - HYPERGLYCAEMIA [None]
  - CONSTIPATION [None]
  - SPEECH DISORDER [None]
  - WEIGHT INCREASED [None]
  - BACK PAIN [None]
  - VISUAL IMPAIRMENT [None]
  - DIZZINESS [None]
